FAERS Safety Report 5697495-2 (Version None)
Quarter: 2008Q2

REPORT INFORMATION
  Report Type: 
  Country: None (occurrence: None)
  Receive Date: 20080408
  Receipt Date: 20080326
  Transmission Date: 20081010
  Serious: Yes (Hospitalization)
  Sender: FDA-Public Use
  Company Number: US-AMGEN-QUU271408

PATIENT
  Sex: Female
  Weight: 59.9 kg

DRUGS (2)
  1. ENBREL [Suspect]
     Indication: RHEUMATOID ARTHRITIS
     Route: 058
     Dates: start: 20040614
  2. METHOTREXATE [Concomitant]
     Route: 048
     Dates: start: 20060101

REACTIONS (4)
  - FALL [None]
  - MUSCULOSKELETAL DEFORMITY [None]
  - OSTEOARTHRITIS [None]
  - RHEUMATOID ARTHRITIS [None]
